FAERS Safety Report 10968831 (Version 1)
Quarter: 2015Q1

REPORT INFORMATION
  Report Type: Spontaneous
  Country: UG (occurrence: UG)
  Receive Date: 20150331
  Receipt Date: 20150331
  Transmission Date: 20150721
  Serious: Yes (Other)
  Sender: FDA-Public Use
  Company Number: UG-CIPLA LTD.-2015UG02470

PATIENT

DRUGS (4)
  1. TENOFOVIR DISOPROXIL FUMARATE [Suspect]
     Active Substance: TENOFOVIR DISOPROXIL FUMARATE
  2. LOPINAVIR/RITONAVIR [Suspect]
     Active Substance: LOPINAVIR\RITONAVIR
  3. ATAZANAVIR [Concomitant]
     Active Substance: ATAZANAVIR
  4. LAMIVUDINE. [Suspect]
     Active Substance: LAMIVUDINE

REACTIONS (3)
  - Urea urine increased [Recovered/Resolved]
  - Blood creatinine increased [Recovered/Resolved]
  - Swelling face [Recovered/Resolved]
